FAERS Safety Report 5258674-1 (Version None)
Quarter: 2007Q1

REPORT INFORMATION
  Report Type: 
  Country: None (occurrence: None)
  Receive Date: 20070305
  Receipt Date: 20070222
  Transmission Date: 20070707
  Serious: Yes (Life-Threatening, Hospitalization)
  Sender: FDA-Public Use
  Company Number: 2007SP003477

PATIENT
  Age: 79 Year
  Sex: Female

DRUGS (5)
  1. DESLORATADINE [Suspect]
     Dosage: PO
     Route: 048
  2. ARCALION (NO PREF. NAME) [Suspect]
     Dosage: PO
     Route: 048
  3. ESIDRIX [Suspect]
  4. PRIMPERAN TAB [Suspect]
  5. TRIFULCAN (FLUCONAZOLE) [Suspect]
     Indication: DRUG USE FOR UNKNOWN INDICATION

REACTIONS (6)
  - FACE INJURY [None]
  - FALL [None]
  - LOSS OF CONSCIOUSNESS [None]
  - SJOGREN'S SYNDROME [None]
  - STEVENS-JOHNSON SYNDROME [None]
  - SYSTEMIC LUPUS ERYTHEMATOSUS [None]
